FAERS Safety Report 8429229-2 (Version None)
Quarter: 2012Q2

REPORT INFORMATION
  Report Type: 
  Country: None (occurrence: None)
  Receive Date: 20120612
  Receipt Date: 20120605
  Transmission Date: 20120825
  Serious: Yes (Other)
  Sender: FDA-Public Use
  Company Number: PHHY2012TR048961

PATIENT

DRUGS (1)
  1. DEFERASIROX [Suspect]
     Indication: IRON OVERLOAD
     Dosage: 10-35 MG/KG, UNK
     Route: 048

REACTIONS (4)
  - PELIOSIS HEPATIS [None]
  - BLOOD CREATININE INCREASED [None]
  - PROTEINURIA [None]
  - HAEMOSIDEROSIS [None]
